FAERS Safety Report 5579033-8 (Version None)
Quarter: 2007Q4

REPORT INFORMATION
  Report Type: 
  Country: None (occurrence: None)
  Receive Date: 20071228
  Receipt Date: 20071221
  Transmission Date: 20080405
  Serious: Yes (Death, Hospitalization)
  Sender: FDA-Public Use
  Company Number: TPA2007A02539

PATIENT
  Age: 78 Year

DRUGS (2)
  1. PIOGLITAZONE HCL [Suspect]
     Indication: CEREBROVASCULAR ACCIDENT PROPHYLAXIS
     Dosage: 1 IN 1 D, PER ORAL
     Route: 048
  2. PIOGLITAZONE HCL [Suspect]
     Indication: ISCHAEMIC HEART DISEASE PROPHYLAXIS
     Dosage: 1 IN 1 D, PER ORAL
     Route: 048

REACTIONS (12)
  - ATRIAL FIBRILLATION [None]
  - BRADYCARDIA [None]
  - CARDIAC ARREST [None]
  - CHOLECYSTECTOMY [None]
  - CLOSTRIDIAL INFECTION [None]
  - COLECTOMY [None]
  - FALL [None]
  - HIP FRACTURE [None]
  - HYPOTENSION [None]
  - ILEOSTOMY [None]
  - RESPIRATORY FAILURE [None]
  - SEPSIS [None]
